FAERS Safety Report 8965741 (Version 1)
Quarter: 2012Q4

REPORT INFORMATION
  Report Type: Spontaneous
  Country: TW (occurrence: None)
  Receive Date: 20121204
  Receipt Date: 20121204
  Transmission Date: 20130627
  Serious: Yes (Other)
  Sender: FDA-Public Use
  Company Number: 2012-16423

PATIENT
  Age: 29 Year
  Sex: Male

DRUGS (1)
  1. IBUPROFEN [Suspect]
     Indication: SORE THROAT

REACTIONS (3)
  - Fixed eruption [None]
  - Erythema [None]
  - Blister [None]
